FAERS Safety Report 11535744 (Version 2)
Quarter: 2015Q4

REPORT INFORMATION
  Report Type: Spontaneous
  Country: US (occurrence: US)
  Receive Date: 20150922
  Receipt Date: 20151028
  Transmission Date: 20160304
  Serious: Yes (Other)
  Sender: FDA-Public Use
  Company Number: US-AMGEN-USASP2015096827

PATIENT
  Age: 63 Year
  Sex: Female

DRUGS (3)
  1. ENBREL [Suspect]
     Active Substance: ETANERCEPT
     Indication: MACULAR OEDEMA
  2. ENBREL [Suspect]
     Active Substance: ETANERCEPT
     Indication: ANKYLOSING SPONDYLITIS
     Dosage: UNK
     Route: 065
  3. REMICADE [Concomitant]
     Active Substance: INFLIXIMAB
     Dosage: UNK

REACTIONS (7)
  - Device issue [Unknown]
  - Drug effect incomplete [Unknown]
  - Off label use [Unknown]
  - Anaphylactic reaction [Unknown]
  - Macular oedema [Unknown]
  - Pain in extremity [Unknown]
  - Circumstance or information capable of leading to device use error [Unknown]
